FAERS Safety Report 8446613-1 (Version None)
Quarter: 2012Q2

REPORT INFORMATION
  Report Type: 
  Country: None (occurrence: None)
  Receive Date: 20120619
  Receipt Date: 20120611
  Transmission Date: 20120825
  Serious: Yes (Hospitalization)
  Sender: FDA-Public Use
  Company Number: DE-AMGEN-DEUSP2012037090

PATIENT
  Age: 72 Year
  Sex: Female

DRUGS (6)
  1. METHOTREXATE SODIUM [Concomitant]
     Dosage: 7.5 MG, WEEKLY
  2. RAMIPRIL [Concomitant]
     Dosage: UNK
  3. AMLODIPINE [Concomitant]
     Dosage: 10 MG, UNK
  4. ENBREL [Suspect]
     Indication: RHEUMATOID ARTHRITIS
     Dosage: 50 MG, WEEKLY
     Dates: start: 20080711
  5. METOHEXAL                          /00376902/ [Concomitant]
     Dosage: 47.5 MG, UNK
  6. AMITRIPTYLINE HCL [Concomitant]
     Dosage: 10 MG, UNK

REACTIONS (2)
  - ARTHROPATHY [None]
  - HEPATIC ENZYME ABNORMAL [None]
